FAERS Safety Report 7000861-6 (Version None)
Quarter: 2010Q3

REPORT INFORMATION
  Report Type: 
  Country: None (occurrence: None)
  Receive Date: 20100920
  Receipt Date: 20100906
  Transmission Date: 20110219
  Serious: Yes (Death)
  Sender: FDA-Public Use
  Company Number: PHHY2010AU60765

PATIENT
  Sex: Male

DRUGS (3)
  1. ACLASTA [Suspect]
     Indication: OSTEOPOROSIS
     Dosage: 5 MG/100 ML
     Route: 042
     Dates: start: 20090421, end: 20090421
  2. CARTIA                                  /AUS/ [Concomitant]
     Dosage: 100 MG, UNK
     Route: 048
  3. AVODART [Concomitant]
     Indication: BENIGN PROSTATIC HYPERPLASIA
     Dosage: 500 MG, QD
     Route: 048

REACTIONS (1)
  - DEATH [None]
